FAERS Safety Report 13680686 (Version 1)
Quarter: 2017Q2

REPORT INFORMATION
  Report Type: Spontaneous
  Country: SI (occurrence: SI)
  Receive Date: 20170623
  Receipt Date: 20170623
  Transmission Date: 20170830
  Serious: Yes (Other)
  Sender: FDA-Public Use
  Company Number: SI-BION-006430

PATIENT
  Age: 55 Year
  Sex: Female

DRUGS (1)
  1. PARICALCITOL. [Suspect]
     Active Substance: PARICALCITOL
     Indication: PROTEINURIA
     Dosage: INITIALLY PATIENT RECEIVED 1 UG/DAY THEN DOSE INCRESED TO 2 UG/DAY

REACTIONS (2)
  - Condition aggravated [Recovering/Resolving]
  - Hypercalcaemia [Recovering/Resolving]
